FAERS Safety Report 5659442-9 (Version None)
Quarter: 2008Q1

REPORT INFORMATION
  Report Type: 
  Country: None (occurrence: None)
  Receive Date: 20080307
  Receipt Date: 20080307
  Transmission Date: 20080703
  Serious: Yes (Other)
  Sender: FDA-Public Use
  Company Number: None

PATIENT
  Sex: Female

DRUGS (1)
  1. FOSAMAX [Suspect]
     Dosage: DAILY X 4 YR ORAL WKLY X 2 YRS

REACTIONS (3)
  - JOINT CREPITATION [None]
  - PAIN IN JAW [None]
  - TRISMUS [None]
